FAERS Safety Report 5673086-4 (Version None)
Quarter: 2008Q1

REPORT INFORMATION
  Report Type: 
  Country: None (occurrence: None)
  Receive Date: 20080319
  Receipt Date: 20080117
  Transmission Date: 20080703
  Serious: No
  Sender: FDA-Public Use
  Company Number: US-ASTRAZENECA-2008UW01328

PATIENT
  Age: 78 Year
  Sex: Female
  Weight: 47.6 kg

DRUGS (7)
  1. SYMBICORT [Suspect]
     Indication: NASOPHARYNGITIS
     Dosage: 80/4.5 UG 1 PUFF IN AM; 160/4.5 UG 1 PUFF IN AM AND 2 PUFFS IN PM
     Route: 055
     Dates: start: 20080104
  2. SYMBICORT [Suspect]
     Indication: BRONCHITIS
     Dosage: 80/4.5 UG 1 PUFF IN AM; 160/4.5 UG 1 PUFF IN AM AND 2 PUFFS IN PM
     Route: 055
     Dates: start: 20080104
  3. ALBUTEROL [Concomitant]
  4. AZMACORT [Concomitant]
  5. ENALAPRIL MALEATE [Concomitant]
  6. SYNTHROID [Concomitant]
  7. MULTIPLE VITAMIN [Concomitant]

REACTIONS (4)
  - DYSPNOEA [None]
  - NERVOUSNESS [None]
  - PARAESTHESIA [None]
  - TEMPERATURE REGULATION DISORDER [None]
